FAERS Safety Report 7939306-8 (Version None)
Quarter: 2011Q4

REPORT INFORMATION
  Report Type: 
  Country: None (occurrence: None)
  Receive Date: 20111125
  Receipt Date: 20110215
  Transmission Date: 20120403
  Serious: No
  Sender: FDA-Public Use
  Company Number: US-BAYER-2011-078139

PATIENT
  Age: 77 Year
  Sex: Female

DRUGS (1)
  1. LEUKINE [Suspect]
     Indication: MYELODYSPLASTIC SYNDROME
     Dosage: UNK
     Dates: start: 20110204

REACTIONS (4)
  - BLOOD GLUCOSE INCREASED [None]
  - PAIN [None]
  - INFLUENZA LIKE ILLNESS [None]
  - CHILLS [None]
